FAERS Safety Report 7124495-8 (Version None)
Quarter: 2010Q4

REPORT INFORMATION
  Report Type: 
  Country: None (occurrence: None)
  Receive Date: 20101128
  Receipt Date: 20101117
  Transmission Date: 20110411
  Serious: Yes (Hospitalization, Other)
  Sender: FDA-Public Use
  Company Number: US-AMGEN-USASP2010003407

PATIENT

DRUGS (5)
  1. ENBREL [Suspect]
     Indication: JUVENILE ARTHRITIS
     Dates: start: 19970101, end: 20100401
  2. TOPAMAX [Concomitant]
  3. GABAPENTIN [Concomitant]
  4. NEXIUM [Concomitant]
  5. FLEXERIL [Concomitant]

REACTIONS (2)
  - CHOLECYSTITIS CHRONIC [None]
  - MULTIPLE SCLEROSIS [None]
